FAERS Safety Report 8312638-X (Version None)
Quarter: 2012Q2

REPORT INFORMATION
  Report Type: 
  Country: None (occurrence: None)
  Receive Date: 20120424
  Receipt Date: 20120410
  Transmission Date: 20120825
  Serious: Yes (Other)
  Sender: FDA-Public Use
  Company Number: 1203-162

PATIENT
  Age: 74 Year
  Sex: Male

DRUGS (3)
  1. EYLEA [Suspect]
  2. EYLEA [Suspect]
     Dates: start: 20120112
  3. EYLEA [Suspect]

REACTIONS (1)
  - VISUAL ACUITY REDUCED [None]
